FAERS Safety Report 14358219 (Version 1)
Quarter: 2018Q1

REPORT INFORMATION
  Report Type: Spontaneous
  Country: US (occurrence: US)
  Receive Date: 20180105
  Receipt Date: 20180105
  Transmission Date: 20180509
  Serious: No
  Sender: FDA-Public Use
  Company Number: US-SA-2017SA194754

PATIENT
  Age: 31 Year
  Sex: Male

DRUGS (15)
  1. DUPIXENT [Suspect]
     Active Substance: DUPILUMAB
     Indication: DERMATITIS ATOPIC
     Route: 058
     Dates: start: 20170630
  2. TRIAMCINOLONE [Concomitant]
     Active Substance: TRIAMCINOLONE
     Indication: ECZEMA
     Dosage: BID,PRN
     Route: 065
  3. HALOBETASOL [Concomitant]
     Active Substance: HALOBETASOL PROPIONATE
  4. CLARITIN [Concomitant]
     Active Substance: LORATADINE
  5. FLONASE [Concomitant]
     Active Substance: FLUTICASONE PROPIONATE
     Indication: RHINITIS
     Route: 065
     Dates: start: 201703
  6. TOBRADEX [Concomitant]
     Active Substance: DEXAMETHASONE\TOBRAMYCIN
  7. VITAMIN D [Concomitant]
     Active Substance: CHOLECALCIFEROL
  8. KETOTIFEN [Concomitant]
     Active Substance: KETOTIFEN
  9. FLUTICASONE. [Concomitant]
     Active Substance: FLUTICASONE
  10. ALBUTEROL. [Concomitant]
     Active Substance: ALBUTEROL
     Indication: ASTHMA
     Route: 065
  11. QVAR [Concomitant]
     Active Substance: BECLOMETHASONE DIPROPIONATE
  12. BETAMETHASONE. [Concomitant]
     Active Substance: BETAMETHASONE
     Indication: ECZEMA
     Dosage: BID,PRN
     Route: 065
     Dates: start: 201605
  13. DESONIDE. [Concomitant]
     Active Substance: DESONIDE
     Indication: ECZEMA
     Dosage: BID,PRN
     Route: 065
     Dates: start: 201605
  14. CLOBETASOL [Concomitant]
     Active Substance: CLOBETASOL
     Dosage: QD, PRN?SHAMPOO
     Route: 065
     Dates: start: 201606
  15. MOMETASONE [Concomitant]
     Active Substance: MOMETASONE

REACTIONS (4)
  - Eye pain [Not Recovered/Not Resolved]
  - Eye pruritus [Not Recovered/Not Resolved]
  - Eye discharge [Not Recovered/Not Resolved]
  - Conjunctivitis [Not Recovered/Not Resolved]
